FAERS Safety Report 20714568 (Version 1)
Quarter: 2022Q2

REPORT INFORMATION
  Report Type: Spontaneous
  Country: HR (occurrence: HR)
  Receive Date: 20220415
  Receipt Date: 20220415
  Transmission Date: 20220721
  Serious: Yes (Death, Other)
  Sender: FDA-Public Use
  Company Number: HR-BoehringerIngelheim-2022-BI-165366

PATIENT
  Age: 54 Year
  Sex: Male

DRUGS (2)
  1. GILOTRIF [Suspect]
     Active Substance: AFATINIB
     Indication: Lung adenocarcinoma
  2. GILOTRIF [Suspect]
     Active Substance: AFATINIB
     Indication: EGFR gene mutation

REACTIONS (4)
  - Death [Fatal]
  - Rash [Unknown]
  - Diarrhoea [Unknown]
  - Disease progression [Not Recovered/Not Resolved]
